FAERS Safety Report 10285790 (Version 1)
Quarter: 2014Q3

REPORT INFORMATION
  Report Type: Spontaneous
  Country: US (occurrence: None)
  Receive Date: 20140703
  Receipt Date: 20140703
  Transmission Date: 20150326
  Serious: Yes (Other)
  Sender: FDA-Public Use
  Company Number: None

PATIENT
  Age: 36 Year
  Sex: Male
  Weight: 81.65 kg

DRUGS (1)
  1. METHYLPHENIDATE ER [Suspect]
     Active Substance: METHYLPHENIDATE
     Indication: ATTENTION DEFICIT/HYPERACTIVITY DISORDER
     Dosage: 1 PILL ONCE DAILY TAKEN BY MOUTH
     Route: 048
     Dates: start: 20140123, end: 20140130

REACTIONS (8)
  - Vision blurred [None]
  - Amnesia [None]
  - Irritability [None]
  - Product substitution issue [None]
  - Headache [None]
  - Drug ineffective [None]
  - Dizziness [None]
  - Psychotic disorder [None]

NARRATIVE: CASE EVENT DATE: 20140127
